FAERS Safety Report 8088131-9 (Version None)
Quarter: 2012Q1

REPORT INFORMATION
  Report Type: 
  Country: None (occurrence: None)
  Receive Date: 20120131
  Receipt Date: 20120120
  Transmission Date: 20120608
  Serious: No
  Sender: FDA-Public Use
  Company Number: US-BIOGENIDEC-2011BI041133

PATIENT
  Age: 64 Year
  Sex: Female

DRUGS (1)
  1. TYSABRI [Suspect]
     Indication: MULTIPLE SCLEROSIS
     Route: 042
     Dates: start: 20110805, end: 20111123

REACTIONS (11)
  - COLONIC POLYP [None]
  - DRUG EFFECT DECREASED [None]
  - MOBILITY DECREASED [None]
  - GAIT DISTURBANCE [None]
  - CONSTIPATION [None]
  - ASTHENIA [None]
  - URINARY TRACT INFECTION [None]
  - DEPRESSION [None]
  - DRUG INEFFECTIVE [None]
  - DIARRHOEA [None]
  - MUSCULOSKELETAL PAIN [None]
